FAERS Safety Report 6172066-2 (Version None)
Quarter: 2009Q2

REPORT INFORMATION
  Report Type: 
  Country: None (occurrence: None)
  Receive Date: 20090428
  Receipt Date: 20090428
  Transmission Date: 20091009
  Serious: Yes (Other)
  Sender: FDA-Public Use
  Company Number: None

PATIENT
  Sex: Female

DRUGS (1)
  1. MULTIHANCE [Suspect]
     Indication: NUCLEAR MAGNETIC RESONANCE IMAGING
     Dosage: 10.6ML
     Dates: start: 20090203, end: 20090203

REACTIONS (8)
  - ANXIETY [None]
  - MIGRAINE [None]
  - NAUSEA [None]
  - NERVOUSNESS [None]
  - OROPHARYNGEAL DISCOMFORT [None]
  - POSTNASAL DRIP [None]
  - REFUSAL OF TREATMENT BY PATIENT [None]
  - THROAT TIGHTNESS [None]
